FAERS Safety Report 9132717 (Version 1)
Quarter: 2013Q1

REPORT INFORMATION
  Report Type: Spontaneous
  Country: US (occurrence: US)
  Receive Date: 20130128
  Receipt Date: 20130128
  Transmission Date: 20140127
  Serious: No
  Sender: FDA-Public Use
  Company Number: US-009507513-1301USA011132

PATIENT
  Age: 78 Year
  Sex: Female

DRUGS (3)
  1. DULERA [Suspect]
     Indication: ASTHMA
     Dosage: UNK
     Route: 048
  2. TRICOR (ADENOSINE) [Concomitant]
  3. JANUVIA [Concomitant]

REACTIONS (1)
  - Cataract [Unknown]
